FAERS Safety Report 7021730-1 (Version None)
Quarter: 2010Q3

REPORT INFORMATION
  Report Type: 
  Country: None (occurrence: None)
  Receive Date: 20100930
  Receipt Date: 20100922
  Transmission Date: 20110219
  Serious: Yes (Hospitalization)
  Sender: FDA-Public Use
  Company Number: US-BIOGENIDEC-2010BI031358

PATIENT
  Age: 56 Year
  Sex: Female
  Weight: 58 kg

DRUGS (2)
  1. AVONEX [Suspect]
     Indication: MULTIPLE SCLEROSIS
     Route: 030
     Dates: start: 19990320
  2. AVONEX [Suspect]
     Route: 030

REACTIONS (4)
  - HYPERTENSION [None]
  - NEPHROLITHIASIS [None]
  - PROTEUS INFECTION [None]
  - URINARY TRACT INFECTION [None]
